FAERS Safety Report 6457373-8 (Version None)
Quarter: 2009Q4

REPORT INFORMATION
  Report Type: 
  Country: None (occurrence: None)
  Receive Date: 20091125
  Receipt Date: 20091119
  Transmission Date: 20100525
  Serious: Yes (Life-Threatening, Hospitalization)
  Sender: FDA-Public Use
  Company Number: GB-MERCK-0910GBR00032

PATIENT
  Age: 49 Year
  Sex: Female

DRUGS (6)
  1. COZAAR [Suspect]
     Route: 048
  2. METFORMIN [Suspect]
     Indication: TYPE 2 DIABETES MELLITUS
     Route: 065
  3. ATENOLOL [Concomitant]
     Route: 065
  4. BENDROFLUMETHIAZIDE [Concomitant]
     Route: 048
  5. PROCHLORPERAZINE [Concomitant]
     Indication: VOMITING
     Route: 065
  6. NONSTEROIDAL ANTI-INFLAMMATORY DRUG (UNSPECIFIED) [Concomitant]
     Route: 065

REACTIONS (10)
  - ABDOMINAL PAIN LOWER [None]
  - DEHYDRATION [None]
  - DIARRHOEA [None]
  - DYSPNOEA [None]
  - HYPOTENSION [None]
  - HYPOXIA [None]
  - LACTIC ACIDOSIS [None]
  - PULMONARY OEDEMA [None]
  - RENAL FAILURE ACUTE [None]
  - VOMITING [None]
